FAERS Safety Report 11032635 (Version 1)
Quarter: 2015Q2

REPORT INFORMATION
  Report Type: Spontaneous
  Country: US (occurrence: None)
  Receive Date: 20150414
  Receipt Date: 20150414
  Transmission Date: 20150821
  Serious: Yes (Other)
  Sender: FDA-Public Use
  Company Number: 114409

PATIENT
  Sex: Female

DRUGS (1)
  1. OXY CLEANSING PADS MILD [Suspect]
     Active Substance: SALICYLIC ACID
     Dates: start: 20150131

REACTIONS (1)
  - Application site burn [None]

NARRATIVE: CASE EVENT DATE: 20150131
